FAERS Safety Report 5147051-X (Version None)
Quarter: 2006Q4

REPORT INFORMATION
  Report Type: 
  Country: None (occurrence: None)
  Receive Date: 20061109
  Receipt Date: 20061030
  Transmission Date: 20070319
  Serious: Yes (Other)
  Sender: FDA-Public Use
  Company Number: US-SANOFI-SYNTHELABO-A03200606541

PATIENT
  Age: 51 Year
  Sex: Male

DRUGS (14)
  1. VITAMINS [Concomitant]
     Dosage: UNK
     Route: 048
  2. DIGITEK [Concomitant]
     Dosage: UNK
     Route: 048
  3. WELLBUTRIN [Concomitant]
     Dosage: UNK
     Route: 048
  4. TRICOR [Concomitant]
     Dosage: UNK
     Route: 048
  5. NIASPAN [Concomitant]
     Dosage: UNK
     Route: 048
  6. METFORMIN HCL [Concomitant]
     Dosage: UNK
     Route: 048
  7. WARFARIN SODIUM [Concomitant]
     Dosage: UNK
     Route: 048
  8. LIPITOR [Concomitant]
     Dosage: UNK
     Route: 048
  9. LISINOPRIL [Concomitant]
     Dosage: UNK
     Route: 048
  10. ACTOS [Concomitant]
     Dosage: UNK
     Route: 048
  11. COREG [Concomitant]
     Dosage: UNK
     Route: 048
  12. BENADRYL [Concomitant]
     Dosage: UNK
     Route: 048
  13. CHANTIX [Suspect]
     Indication: DRUG USE FOR UNKNOWN INDICATION
     Dosage: UNK
     Route: 048
  14. AMBIEN [Suspect]
     Indication: INSOMNIA
     Route: 048

REACTIONS (2)
  - DIABETES MELLITUS [None]
  - DRUG INEFFECTIVE [None]
